FAERS Safety Report 8170409 (Version 3)
Quarter: 2012Q4

REPORT INFORMATION
  Report Type: Report from Study
  Country: JP (occurrence: JP)
  Receive Date: 20111006
  Receipt Date: 20121001
  Transmission Date: 20130627
  Serious: Yes (Hospitalization)
  Sender: FDA-Public Use
  Company Number: JP-ASTELLAS-2011JP006873

PATIENT
  Age: 28 Year
  Sex: Female
  Weight: 50.5 kg

DRUGS (30)
  1. TACROLIMUS CAPSULES [Suspect]
     Indication: LUPUS NEPHRITIS
     Dosage: 2 mg, Unknown/D
     Route: 048
     Dates: start: 20090903, end: 20101101
  2. TACROLIMUS CAPSULES [Suspect]
     Dosage: 2.5 mg, Unknown/D
     Route: 048
     Dates: start: 2010
  3. LIVALO [Suspect]
     Dosage: 1 mg, Unknown/D
     Route: 048
     Dates: start: 20101216, end: 20110714
  4. PREDNISOLONE [Concomitant]
     Indication: LUPUS NEPHRITIS
     Dosage: 11 mg, Unknown/D
     Route: 048
     Dates: end: 20090902
  5. PREDNISOLONE [Concomitant]
     Dosage: 10 mg, Unknown/D
     Route: 048
     Dates: start: 20090903, end: 20090930
  6. PREDNISOLONE [Concomitant]
     Dosage: 9 mg, Unknown/D
     Route: 048
     Dates: start: 20091001, end: 20091202
  7. PREDNISOLONE [Concomitant]
     Dosage: 8 mg, Unknown/D
     Route: 048
     Dates: start: 20091203, end: 20100907
  8. PREDNISOLONE [Concomitant]
     Dosage: 15 mg, Unknown/D
     Route: 048
     Dates: start: 20100908, end: 20100915
  9. PREDNISOLONE [Concomitant]
     Dosage: 12.5 mg, Unknown/D
     Route: 048
     Dates: start: 20100916, end: 20100921
  10. PREDNISOLONE [Concomitant]
     Dosage: 12 mg, Unknown/D
     Route: 048
     Dates: start: 20100922, end: 20100925
  11. PREDNISOLONE [Concomitant]
     Dosage: 11 mg, Unknown/D
     Route: 048
     Dates: start: 20100926, end: 20100929
  12. PREDNISOLONE [Concomitant]
     Dosage: 10 mg, Unknown/D
     Route: 048
     Dates: start: 20100930, end: 20101007
  13. PREDNISOLONE [Concomitant]
     Dosage: 15 mg, Unknown/D
     Route: 048
     Dates: start: 20101008, end: 20101013
  14. PREDNISOLONE [Concomitant]
     Dosage: 14 mg, Unknown/D
     Route: 048
     Dates: start: 20101014, end: 20110309
  15. PREDNISOLONE [Concomitant]
     Dosage: 13 mg, Unknown/D
     Route: 048
     Dates: start: 20110310, end: 20110406
  16. PREDNISOLONE [Concomitant]
     Dosage: 12 mg, Unknown/D
     Route: 048
     Dates: start: 20110407, end: 20110615
  17. PREDNISOLONE [Concomitant]
     Dosage: 11 mg, Unknown/D
     Route: 048
     Dates: start: 20110616
  18. BAKTAR [Concomitant]
     Dosage: 0.5 DF, Unknown/D
     Route: 048
     Dates: end: 20110522
  19. BAYASPIRIN [Concomitant]
     Indication: LUPUS NEPHRITIS
     Dosage: 100 mg, Unknown/D
     Route: 048
  20. ARTIST [Concomitant]
     Dosage: 2.5 mg, Unknown/D
     Route: 048
     Dates: end: 20101216
  21. MUCOSTA [Concomitant]
     Dosage: UNK
     Route: 048
     Dates: end: 20100317
  22. ADALAT CR [Concomitant]
     Indication: HYPERTENSION
     Dosage: 20 mg, Unknown/D
     Route: 048
  23. ACTONEL [Concomitant]
     Indication: PROPHYLAXIS
     Dosage: 17.5 mg, Weekly
     Route: 048
     Dates: end: 20100801
  24. RISPERDAL [Concomitant]
     Indication: SCHIZOPHRENIA
     Dosage: UNK
     Route: 048
     Dates: end: 20091202
  25. RISPERDAL [Concomitant]
     Dosage: 1 mg, Unknown/D
     Route: 048
     Dates: start: 20100724
  26. OMEPRAL [Concomitant]
     Dosage: 10 mg, Unknown/D
     Route: 048
  27. LOXONIN [Concomitant]
     Indication: HEADACHE
     Dosage: 60 mg, Unknown/D
     Route: 048
     Dates: start: 20100527, end: 20100707
  28. DEPAS [Concomitant]
     Dosage: 3 mg, Unknown/D
     Route: 048
     Dates: end: 20101001
  29. SEROQUEL [Concomitant]
     Indication: SCHIZOPHRENIA
     Dosage: 50 mg, Unknown/D
     Route: 048
     Dates: start: 20100724, end: 20100906
  30. LONASEN [Concomitant]
     Indication: SCHIZOPHRENIA
     Dosage: 4 mg, Unknown/D
     Route: 048
     Dates: start: 20100723, end: 20100819

REACTIONS (3)
  - Headache [Recovering/Resolving]
  - Schizophrenia [Recovering/Resolving]
  - Pruritus [Recovering/Resolving]
